FAERS Safety Report 6439986-2 (Version None)
Quarter: 2009Q4

REPORT INFORMATION
  Report Type: 
  Country: None (occurrence: None)
  Receive Date: 20091113
  Receipt Date: 20091113
  Transmission Date: 20100525
  Serious: Yes (Other)
  Sender: FDA-Public Use
  Company Number: US-PFIZER INC-2009248695

PATIENT
  Sex: Female

DRUGS (2)
  1. DILANTIN-125 [Suspect]
  2. CHANTIX [Suspect]

REACTIONS (1)
  - CONVULSION [None]
